FAERS Safety Report 10166950 (Version 3)
Quarter: 2014Q2

REPORT INFORMATION
  Report Type: Report from Study
  Country: US (occurrence: US)
  Receive Date: 20140512
  Receipt Date: 20140520
  Transmission Date: 20141212
  Serious: Yes (Death, Hospitalization, Other)
  Sender: FDA-Public Use
  Company Number: PHHO2014US002643

PATIENT
  Age: 60 Year
  Sex: Female

DRUGS (4)
  1. BLINDED ACZ885 [Suspect]
     Indication: CARDIOVASCULAR EVENT PROPHYLAXIS
     Dosage: CODE NOT BROKEN
     Route: 058
     Dates: start: 20130523, end: 20130605
  2. BLINDED NO TREATMENT RECEIVED [Suspect]
     Indication: CARDIOVASCULAR EVENT PROPHYLAXIS
     Dosage: CODE NOT BROKEN
     Route: 058
     Dates: start: 20130523, end: 20130605
  3. BLINDED PLACEBO [Suspect]
     Indication: CARDIOVASCULAR EVENT PROPHYLAXIS
     Dosage: CODE NOT BROKEN
     Route: 058
     Dates: start: 20130523, end: 20130605
  4. VANCOMYCIN [Suspect]
     Dosage: DOSE VARIED ON VANCO TROUGH
     Dates: start: 20131216, end: 20140101

REACTIONS (4)
  - Renal failure [Not Recovered/Not Resolved]
  - Death [Fatal]
  - Cellulitis [Not Recovered/Not Resolved]
  - Pneumonia [Recovered/Resolved]
